FAERS Safety Report 5780277-0 (Version None)
Quarter: 2008Q2

REPORT INFORMATION
  Report Type: 
  Country: None (occurrence: None)
  Receive Date: 20080620
  Receipt Date: 20080618
  Transmission Date: 20081010
  Serious: Yes (Death, Hospitalization, Other)
  Sender: FDA-Public Use
  Company Number: PHBS2008ES04840

PATIENT
  Age: 48 Year
  Sex: Male

DRUGS (16)
  1. CYCLOSPORINE [Suspect]
     Indication: STEM CELL TRANSPLANT
     Dosage: 50 MG, BID
     Route: 065
  2. CYCLOSPORINE [Suspect]
     Indication: PROPHYLAXIS AGAINST GRAFT VERSUS HOST DISEASE
  3. PREDNISONE TAB [Suspect]
     Indication: PROPHYLAXIS AGAINST GRAFT VERSUS HOST DISEASE
     Dosage: 60 MG, QD
     Route: 065
  4. METHYLPREDNISOLONE [Suspect]
     Indication: GRAFT VERSUS HOST DISEASE
     Dosage: 2 MG/KG
     Route: 065
  5. CIPROFLOXACIN HCL [Concomitant]
     Indication: PROPHYLAXIS
     Dosage: 500 MG, BID
     Route: 065
  6. FLUCONAZOLE [Concomitant]
     Indication: PROPHYLAXIS
     Dosage: 100 MG, QD
     Route: 065
  7. ACYCLOVIR SODIUM [Concomitant]
     Indication: PROPHYLAXIS
     Dosage: UNK, UNK
     Route: 065
  8. GANCICLOVIR [Concomitant]
     Indication: PROPHYLAXIS
     Dosage: 5 MG/KG, QW3
     Route: 065
  9. TRIMETHOPRIM [Concomitant]
     Dosage: BID, QW2
     Route: 065
  10. SULFAMETHOXAZOLE [Concomitant]
     Dosage: BID, QW2
     Route: 065
  11. ITRACONAZOLE [Concomitant]
     Dosage: 100 MG, QD
     Route: 065
  12. IMMUNOGLOBULINS [Concomitant]
     Dosage: 30 G, QW
     Route: 065
  13. RITUXIMAB [Concomitant]
     Indication: LYMPHOMA
     Dosage: 375 MG/M2
     Route: 065
  14. BUSULFAN [Concomitant]
     Indication: LYMPHOMA
     Dosage: 9.6 MG/KG
     Route: 065
  15. CYCLOPHOSPHAMIDE [Concomitant]
     Indication: LYMPHOMA
     Dosage: 120 MG/KG
     Route: 065
  16. THIOTEPA [Concomitant]
     Indication: LYMPHOMA
     Dosage: 10 MG/KG
     Route: 065

REACTIONS (25)
  - ABDOMINAL PAIN UPPER [None]
  - ACANTHAMOEBA INFECTION [None]
  - ACUTE GRAFT VERSUS HOST DISEASE IN INTESTINE [None]
  - ACUTE SINUSITIS [None]
  - BRAIN HERNIATION [None]
  - BRAIN OEDEMA [None]
  - CYTOMEGALOVIRUS INFECTION [None]
  - DEPRESSED LEVEL OF CONSCIOUSNESS [None]
  - DIPLOPIA [None]
  - ENCEPHALITIS [None]
  - GAIT DISTURBANCE [None]
  - GRAFT VERSUS HOST DISEASE [None]
  - HAEMOGLOBIN DECREASED [None]
  - HYPOREFLEXIA [None]
  - IMMUNOSUPPRESSANT DRUG LEVEL DECREASED [None]
  - LUMBAR PUNCTURE ABNORMAL [None]
  - NYSTAGMUS [None]
  - PLATELET COUNT DECREASED [None]
  - PNEUMONIA [None]
  - POSITIVE ROMBERGISM [None]
  - PYREXIA [None]
  - RESPIRATORY FAILURE [None]
  - SUBARACHNOID HAEMORRHAGE [None]
  - SUBCUTANEOUS NODULE [None]
  - VENOOCCLUSIVE LIVER DISEASE [None]
